FAERS Safety Report 5809499-7 (Version None)
Quarter: 2008Q3

REPORT INFORMATION
  Report Type: 
  Country: None (occurrence: None)
  Receive Date: 20080715
  Receipt Date: 20080702
  Transmission Date: 20090109
  Serious: Yes (Hospitalization)
  Sender: FDA-Public Use
  Company Number: FR-ELI_LILLY_AND_COMPANY-FR200807000452

PATIENT
  Sex: Male

DRUGS (2)
  1. GEMZAR [Suspect]
     Indication: TRANSITIONAL CELL CARCINOMA
     Dosage: UNK, UNKNOWN
     Route: 042
     Dates: start: 20080214
  2. CISPLATIN [Concomitant]
     Indication: TRANSITIONAL CELL CARCINOMA
     Dosage: UNK, UNKNOWN
     Route: 042
     Dates: start: 20080214

REACTIONS (3)
  - BONE MARROW FAILURE [None]
  - GOUT [None]
  - PYREXIA [None]
